FAERS Safety Report 4957473-5 (Version None)
Quarter: 2006Q1

REPORT INFORMATION
  Report Type: 
  Country: None (occurrence: None)
  Receive Date: 20060328
  Receipt Date: 20060328
  Transmission Date: 20060701
  Serious: Yes (Life-Threatening, Hospitalization)
  Sender: FDA-Public Use
  Company Number: None

PATIENT
  Age: 17 Year
  Sex: Male
  Weight: 68.0396 kg

DRUGS (1)
  1. ACCUTANE [Suspect]
     Indication: ACNE
     Dosage: 80 MG ONCE A DAY PO
     Route: 048
     Dates: start: 20051005, end: 20060313

REACTIONS (2)
  - DEPRESSION [None]
  - OVERDOSE [None]
